FAERS Safety Report 6834363-4 (Version None)
Quarter: 2010Q3

REPORT INFORMATION
  Report Type: 
  Country: None (occurrence: None)
  Receive Date: 20100712
  Receipt Date: 20070707
  Transmission Date: 20110219
  Serious: No
  Sender: FDA-Public Use
  Company Number: US-PFIZER INC-2007022991

PATIENT
  Sex: Male
  Weight: 136.1 kg

DRUGS (7)
  1. CHANTIX [Suspect]
     Indication: SMOKING CESSATION THERAPY
     Route: 048
     Dates: start: 20070301
  2. OXYMORPHONE HYDROCHLORIDE [Interacting]
     Indication: BACK PAIN
     Route: 048
     Dates: start: 20070301
  3. METHADONE HCL [Concomitant]
     Indication: BACK PAIN
     Route: 048
     Dates: end: 20070301
  4. CYMBALTA [Concomitant]
     Route: 048
  5. ALPRAZOLAM [Concomitant]
     Route: 048
  6. FLEXERIL [Concomitant]
     Route: 048
  7. ALL OTHER THERAPEUTIC PRODUCTS [Concomitant]
     Route: 055

REACTIONS (4)
  - CRYING [None]
  - DEPRESSION [None]
  - DRUG INTERACTION [None]
  - HYPERHIDROSIS [None]
